FAERS Safety Report 8604264-X (Version None)
Quarter: 2012Q3

REPORT INFORMATION
  Report Type: 
  Country: None (occurrence: None)
  Receive Date: 20120820
  Receipt Date: 20120808
  Transmission Date: 20120928
  Serious: Yes (Hospitalization)
  Sender: FDA-Public Use
  Company Number: BR-JNJFOC-20120401579

PATIENT
  Sex: Male
  Weight: 57.3 kg

DRUGS (9)
  1. ASCORBIC ACID [Concomitant]
     Indication: PRODUCT USED FOR UNKNOWN INDICATION
     Route: 065
     Dates: start: 20120205
  2. MORPHINE SULFATE [Concomitant]
     Indication: BACK PAIN
     Route: 065
     Dates: start: 20120207
  3. SCOPOLAMINE [Concomitant]
     Indication: ANAL HAEMORRHAGE
     Route: 065
     Dates: start: 20120205
  4. B-VITAMIN COMPLEX [Concomitant]
     Indication: ANAL HAEMORRHAGE
     Route: 065
     Dates: start: 20120206
  5. ABIRATERONE ACETATE [Suspect]
     Route: 048
  6. DIPYRONE INJ [Concomitant]
     Indication: BACK PAIN
     Route: 065
     Dates: start: 20120207
  7. OMEPRAZOLE [Concomitant]
     Indication: ANAL HAEMORRHAGE
     Route: 065
     Dates: start: 20120205
  8. ABIRATERONE ACETATE [Suspect]
     Indication: PROSTATE CANCER METASTATIC
     Route: 048
     Dates: start: 20111213, end: 20120419
  9. PREDNISONE TAB [Suspect]
     Indication: PROSTATE CANCER METASTATIC
     Route: 048
     Dates: start: 20111212

REACTIONS (5)
  - CONDITION AGGRAVATED [None]
  - ANAEMIA [None]
  - GENERAL PHYSICAL HEALTH DETERIORATION [None]
  - CARDIAC FAILURE [None]
  - LUNG INFECTION [None]
